FAERS Safety Report 8267013 (Version 3)
Quarter: 2012Q4

REPORT INFORMATION
  Report Type: 
  Country: JP (occurrence: MX)
  Receive Date: 20111129
  Receipt Date: 20120829
  Transmission Date: 20130627
  Serious: Yes (Death, Hospitalization)
  Sender: FDA-Public Use
  Company Number: PHHY2011MX103790

PATIENT
  Age: 63 Year
  Sex: Male

DRUGS (2)
  1. FORADIL [Suspect]
     Indication: ASTHMA
     Dosage: 12 ug, QD
     Dates: start: 20110724
  2. COUGH AND COLD PREPARATIONS [Concomitant]
     Indication: COUGH

REACTIONS (3)
  - Infarction [Fatal]
  - Cardio-respiratory arrest [Fatal]
  - Asthma [Fatal]
